FAERS Safety Report 7560532-4 (Version None)
Quarter: 2011Q2

REPORT INFORMATION
  Report Type: 
  Country: None (occurrence: None)
  Receive Date: 20110621
  Receipt Date: 20110605
  Transmission Date: 20111010
  Serious: No
  Sender: FDA-Public Use
  Company Number: US-B.I. PHARMACEUTICALS,INC./RIDGEFIELD-2011-BP-13352BP

PATIENT
  Sex: Female

DRUGS (19)
  1. OMEPRAZOLE [Concomitant]
     Indication: GASTROOESOPHAGEAL REFLUX DISEASE
     Dosage: 20 MG
     Route: 048
  2. CLARINEX [Concomitant]
     Indication: HYPERSENSITIVITY
  3. TOPROL-XL [Concomitant]
     Indication: HYPERTENSION
     Dosage: 200 MG
     Route: 048
  4. HYOSCYAMINE [Concomitant]
     Indication: MUSCLE SPASMS
     Route: 048
  5. CLINDAMYCIN [Concomitant]
     Indication: PROPHYLAXIS
     Route: 048
     Dates: start: 20080101
  6. PREMARIN [Concomitant]
     Indication: HORMONE LEVEL ABNORMAL
     Dosage: 0.3 MG
     Route: 048
  7. BONIVA [Concomitant]
     Indication: OSTEOPOROSIS
  8. CLARINEX [Concomitant]
     Indication: SINUS DISORDER
     Dosage: 5 MG
     Route: 048
  9. ASPIRIN [Concomitant]
     Indication: PROPHYLAXIS
     Dosage: 81 MG
     Route: 048
  10. VITAMIN TAB [Concomitant]
     Indication: PROPHYLAXIS
  11. AMLODIPINE BESYLATE [Concomitant]
     Indication: HYPERTENSION
     Dosage: 5 MG
     Route: 048
  12. NASACORT [Concomitant]
     Indication: SINUS DISORDER
     Route: 045
  13. BENADRYL [Concomitant]
     Indication: SINUS DISORDER
     Dosage: 50 MG
     Route: 048
  14. BENADRYL [Concomitant]
     Indication: HYPERSENSITIVITY
  15. NASACORT [Concomitant]
     Indication: HYPERSENSITIVITY
  16. PRADAXA [Suspect]
     Indication: ATRIAL FIBRILLATION
     Dosage: 300 MG
     Route: 048
     Dates: start: 20110318
  17. SIMVASTATIN [Concomitant]
     Indication: BLOOD CHOLESTEROL INCREASED
     Dosage: 20 MG
     Route: 048
  18. BONIVA [Concomitant]
     Indication: BONE DISORDER
     Route: 048
  19. VITAMIN TAB [Concomitant]
     Indication: SUPPLEMENTATION THERAPY

REACTIONS (1)
  - MUSCLE SPASMS [None]
